FAERS Safety Report 17826946 (Version 1)
Quarter: 2020Q3

REPORT INFORMATION
  Report Type: Spontaneous
  Country: CN (occurrence: CN)
  Receive Date: 20200527
  Receipt Date: 20200527
  Transmission Date: 20201104
  Serious: Yes (Other)
  Sender: FDA-Public Use
  Company Number: CN-ROCHE-2606413

PATIENT
  Age: 64 Year
  Sex: Female

DRUGS (5)
  1. MAGNESIUM ISOGLYCYRRHIZINATE [Concomitant]
     Active Substance: MAGNESIUM ISOGLYCYRRHIZINATE
     Dosage: THE THERAPY DETAILS WAS UNKNOWN.
     Route: 065
     Dates: start: 20190101
  2. ALECTINIB. [Suspect]
     Active Substance: ALECTINIB
     Indication: ADENOCARCINOMA
     Route: 065
     Dates: start: 20190101
  3. CEFOSELIS [Concomitant]
     Active Substance: CEFOSELIS
     Dosage: THE THERAPY DETAILS WAS UNKNOWN
     Route: 065
     Dates: start: 20190101
  4. CRIZOTINIB [Concomitant]
     Active Substance: CRIZOTINIB
     Indication: ADENOCARCINOMA
     Route: 048
     Dates: start: 20191029
  5. PANTOPRAZOLE [Concomitant]
     Active Substance: PANTOPRAZOLE
     Dosage: THE THERAPY DETAILS WAS UNKNOWN.
     Route: 065
     Dates: start: 20190101

REACTIONS (7)
  - Spinal osteoarthritis [Unknown]
  - Aortic valve incompetence [Unknown]
  - Hepatic function abnormal [Unknown]
  - Oedema [Unknown]
  - Bradycardia [Unknown]
  - Haemangioma of bone [Unknown]
  - Anaemia [Unknown]

NARRATIVE: CASE EVENT DATE: 202004
